FAERS Safety Report 17858248 (Version 2)
Quarter: 2020Q2

REPORT INFORMATION
  Report Type: Report from Study
  Country: None (occurrence: US)
  Receive Date: 20200604
  Receipt Date: 20200605
  Transmission Date: 20200714
  Serious: No
  Sender: FDA-Public Use
  Company Number: US-US WORLDMEDS, LLC-USW201905-000920

PATIENT
  Age: 74 Year
  Sex: Male
  Weight: 64.86 kg

DRUGS (5)
  1. NEUPRO [Concomitant]
     Active Substance: ROTIGOTINE
  2. CARBIDOPA/LEVODOPA [Concomitant]
     Active Substance: CARBIDOPA\LEVODOPA
  3. RITALIN [Concomitant]
     Active Substance: METHYLPHENIDATE HYDROCHLORIDE
  4. TIGAN [Concomitant]
     Active Substance: TRIMETHOBENZAMIDE HYDROCHLORIDE
  5. APOKYN [Suspect]
     Active Substance: APOMORPHINE HYDROCHLORIDE
     Indication: PARKINSON^S DISEASE
     Route: 058
     Dates: start: 20190430

REACTIONS (2)
  - Fall [Recovering/Resolving]
  - Patella fracture [Recovering/Resolving]

NARRATIVE: CASE EVENT DATE: 20190503
